FAERS Safety Report 7700765-7 (Version None)
Quarter: 2011Q3

REPORT INFORMATION
  Report Type: 
  Country: None (occurrence: None)
  Receive Date: 20110822
  Receipt Date: 20110818
  Transmission Date: 20111222
  Serious: Yes (Hospitalization)
  Sender: FDA-Public Use
  Company Number: FR-ROCHE-754818

PATIENT
  Sex: Male

DRUGS (10)
  1. FOSRENOL [Concomitant]
     Route: 048
  2. VENOFER [Concomitant]
     Dosage: DOSE: 100 MG / 5 ML
     Route: 042
     Dates: end: 20100923
  3. ACTRAPID [Concomitant]
     Route: 058
  4. KAYEXALATE [Concomitant]
     Dosage: POWDER FOR ORAL AND RECTAL SOLUTION
     Route: 048
  5. CAPTOPRIL [Concomitant]
     Dosage: DOSE: 25 MG
     Route: 048
  6. ATARAX [Concomitant]
     Dosage: DOSE: 25 MG
     Route: 048
  7. ARANESP [Concomitant]
     Route: 058
  8. NEBIVOLOL HCL [Concomitant]
     Dosage: DOSE: 5 MG
     Route: 048
  9. COPEGUS [Suspect]
     Dosage: COPEGUS 200 MG, TABLET
     Route: 048
     Dates: start: 20100126, end: 20101012
  10. PEGASYS [Suspect]
     Dosage: PEGASYS 135 UG, INJECTABLE SOLUTION
     Route: 058
     Dates: start: 20100126, end: 20101012

REACTIONS (3)
  - NODULE [None]
  - VISUAL ACUITY REDUCED [None]
  - MACULAR OEDEMA [None]
